FAERS Safety Report 4746451-7 (Version None)
Quarter: 2005Q3

REPORT INFORMATION
  Report Type: 
  Country: None (occurrence: None)
  Receive Date: 20050816
  Receipt Date: 20050816
  Transmission Date: 20060218
  Serious: Yes (Other)
  Sender: FDA-Public Use
  Company Number: None

PATIENT
  Sex: Male
  Weight: 59.8748 kg

DRUGS (8)
  1. RISPERIDONE [Suspect]
     Indication: HALLUCINATION
     Dosage: 2 MG PO QHS
     Route: 048
     Dates: start: 20040701
  2. OMEPRAZOLE [Concomitant]
  3. FELODIPINE [Concomitant]
  4. ATENOLOL [Concomitant]
  5. CASODEX [Concomitant]
  6. GOSERELIN [Concomitant]
  7. SIMVASTATIN [Concomitant]
  8. LORAZEPAM [Concomitant]

REACTIONS (6)
  - ANXIETY [None]
  - COGWHEEL RIGIDITY [None]
  - DYSKINESIA [None]
  - GAIT DISTURBANCE [None]
  - MUSCULOSKELETAL STIFFNESS [None]
  - TREMOR [None]
